FAERS Safety Report 5599281-0 (Version None)
Quarter: 2008Q1

REPORT INFORMATION
  Report Type: 
  Country: None (occurrence: None)
  Receive Date: 20080117
  Receipt Date: 20080107
  Transmission Date: 20080703
  Serious: Yes (Hospitalization, Other)
  Sender: FDA-Public Use
  Company Number: 08012370

PATIENT
  Age: 15 Year
  Sex: Female

DRUGS (1)
  1. CARBAMAZEPINE [Suspect]
     Dosage: 600MG, TID, ORAL
     Route: 048

REACTIONS (7)
  - ANTICONVULSANT DRUG LEVEL INCREASED [None]
  - COUGH [None]
  - DEPRESSED LEVEL OF CONSCIOUSNESS [None]
  - INCREASED UPPER AIRWAY SECRETION [None]
  - LETHARGY [None]
  - MEMORY IMPAIRMENT [None]
  - RETCHING [None]
